FAERS Safety Report 9187100 (Version 1)
Quarter: 2013Q1

REPORT INFORMATION
  Report Type: Spontaneous
  Country: LB (occurrence: LB)
  Receive Date: 20130325
  Receipt Date: 20130325
  Transmission Date: 20140127
  Serious: Yes (Other)
  Sender: FDA-Public Use
  Company Number: LB-NOVOPROD-372444

PATIENT
  Age: 65 Year
  Sex: Female
  Weight: 87 kg

DRUGS (10)
  1. VICTOZA [Suspect]
     Indication: TYPE 2 DIABETES MELLITUS
     Dosage: UNKNOWN
     Route: 065
     Dates: start: 20100901
  2. LANTUS [Concomitant]
     Indication: DIABETES MELLITUS
     Dosage: UNKNOWN
     Route: 065
  3. AMARYL [Concomitant]
     Dosage: 1 MG, QD
     Dates: start: 20100901
  4. GLUCOPHAGE [Concomitant]
     Dosage: 800 MG, BID
  5. CORDARONE [Concomitant]
     Dosage: UNK
     Dates: start: 2005
  6. ZESTORETIC [Concomitant]
     Dosage: 1 TAB, QD
     Dates: start: 2005
  7. AMLOR [Concomitant]
     Dosage: UNK
     Dates: start: 2005
  8. SINTROM [Concomitant]
     Dosage: QD
     Dates: start: 2005
  9. LANOXIN [Concomitant]
     Dosage: 0.25 MG, QD
     Dates: start: 2005
  10. CONCOR [Concomitant]
     Dosage: 5 MG, QD
     Dates: start: 2005

REACTIONS (1)
  - Pancreatic carcinoma [Not Recovered/Not Resolved]
